FAERS Safety Report 6458530 (Version 11)
Quarter: 2012Q4

REPORT INFORMATION
  Report Type: 
  Country: GB (occurrence: GB)
  Receive Date: 20071105
  Receipt Date: 20120917
  Transmission Date: 20130627
  Serious: Yes (Life-Threatening, Hospitalization, Disabling, Other)
  Sender: FDA-Public Use
  Company Number: GB-BRISTOL-MYERS SQUIBB COMPANY-13844618

PATIENT
  Age: 10 Year
  Sex: Male
  Weight: 32 kg

DRUGS (12)
  1. SUSTIVA [Suspect]
     Indication: HIV INFECTION
     Dosage: Cumulative dose:50383.33333
     Route: 048
     Dates: start: 20070302, end: 200707
  2. DIDANOSINE [Suspect]
     Indication: ANTIRETROVIRAL THERAPY
     Route: 065
  3. ZIDOVUDINE [Suspect]
     Indication: ANTIRETROVIRAL THERAPY
     Route: 048
     Dates: start: 20070330, end: 200707
  4. LAMIVUDINE [Suspect]
     Indication: ANTIRETROVIRAL THERAPY
     Route: 048
     Dates: start: 20070330, end: 200707
  5. KIVEXA [Suspect]
     Indication: ANTIRETROVIRAL THERAPY
     Route: 065
  6. ABACAVIR [Suspect]
     Indication: ANTIRETROVIRAL THERAPY
     Route: 065
  7. CO-TRIMOXAZOLE [Suspect]
     Indication: ANTIRETROVIRAL THERAPY
     Route: 065
  8. MYCOPHENOLATE MOFETIL [Suspect]
     Indication: PROPHYLAXIS AGAINST TRANSPLANT REJECTION
     Route: 065
  9. NELFINAVIR [Suspect]
     Indication: HIV INFECTION
     Route: 065
  10. PREDNISOLONE [Suspect]
     Indication: PROPHYLAXIS AGAINST TRANSPLANT REJECTION
     Route: 065
  11. RAPAMUNE [Suspect]
     Indication: PROPHYLAXIS AGAINST TRANSPLANT REJECTION
     Route: 065
  12. ISENTRESS [Suspect]
     Route: 048

REACTIONS (29)
  - Chromaturia [Recovering/Resolving]
  - Liver function test abnormal [Recovering/Resolving]
  - Acute hepatic failure [Unknown]
  - Jaundice [Recovering/Resolving]
  - Liver disorder [Unknown]
  - Lymphadenopathy [Recovering/Resolving]
  - Pharyngitis [Recovering/Resolving]
  - Cachexia [Recovering/Resolving]
  - Toxicity to various agents [Recovering/Resolving]
  - Renal impairment [Recovering/Resolving]
  - Graft dysfunction [Unknown]
  - Hepatic encephalopathy [Recovering/Resolving]
  - Hyperlipidaemia [Recovering/Resolving]
  - Hypertension [Recovering/Resolving]
  - Myopathy [Recovering/Resolving]
  - Transplant rejection [Recovering/Resolving]
  - Hepatic function abnormal [Recovering/Resolving]
  - Cholestasis [Recovering/Resolving]
  - Disease recurrence [Recovering/Resolving]
  - HIV infection [Recovering/Resolving]
  - Drug ineffective [Recovering/Resolving]
  - Blood immunoglobulin E increased [Unknown]
  - Hepatic necrosis [Unknown]
  - Hepatomegaly [Unknown]
  - Hepatitis [Unknown]
  - Pyrexia [Unknown]
  - Rash [Recovered/Resolved]
  - Liver transplant [Recovering/Resolving]
  - Ocular icterus [Recovering/Resolving]
